FAERS Safety Report 6571597-0 (Version None)
Quarter: 2010Q1

REPORT INFORMATION
  Report Type: 
  Country: None (occurrence: None)
  Receive Date: 20100205
  Receipt Date: 20100128
  Transmission Date: 20100710
  Serious: Yes (Other)
  Sender: FDA-Public Use
  Company Number: US-JNJFOC-20100200646

PATIENT
  Sex: Female
  Weight: 56.7 kg

DRUGS (3)
  1. TRINESSA [Suspect]
     Indication: CONTRACEPTION
     Route: 048
  2. ORTHO TRI-CYCLEN [Suspect]
     Indication: CONTRACEPTION
     Route: 048
  3. NASONEX [Concomitant]
     Indication: SEASONAL ALLERGY
     Route: 045

REACTIONS (6)
  - HYPERSENSITIVITY [None]
  - INSOMNIA [None]
  - PRODUCT FORMULATION ISSUE [None]
  - RESPIRATORY DISORDER [None]
  - SWELLING FACE [None]
  - SWOLLEN TONGUE [None]
